FAERS Safety Report 26061577 (Version 2)
Quarter: 2025Q4

REPORT INFORMATION
  Report Type: Report from Study
  Country: US (occurrence: US)
  Receive Date: 20251118
  Receipt Date: 20251218
  Transmission Date: 20260117
  Serious: Yes (Hospitalization)
  Sender: SYNDAX
  Company Number: US-SYNDAX PHARMACEUTICALS, INC.-2025US000904

PATIENT
  Sex: Male
  Weight: 77.47 kg

DRUGS (1)
  1. REVUFORJ [Suspect]
     Active Substance: REVUMENIB CITRATE
     Indication: Product used for unknown indication
     Dosage: 160 MILLIGRAM, BID
     Route: 048

REACTIONS (6)
  - Bone marrow transplant [Unknown]
  - Unevaluable event [Unknown]
  - Dizziness [Unknown]
  - Peripheral swelling [Unknown]
  - Diarrhoea [Unknown]
  - Headache [Unknown]
